FAERS Safety Report 6788634-0 (Version None)
Quarter: 2010Q2

REPORT INFORMATION
  Report Type: 
  Country: None (occurrence: None)
  Receive Date: 20100623
  Receipt Date: 20080428
  Transmission Date: 20101027
  Serious: No
  Sender: FDA-Public Use
  Company Number: US-PFIZER INC-2008037700

PATIENT
  Sex: Female
  Weight: 79.545 kg

DRUGS (3)
  1. CADUET [Suspect]
     Indication: BLOOD CHOLESTEROL INCREASED
     Dosage: 5/10 QD EVERY DAY TDD:5/10
  2. CADUET [Suspect]
     Indication: BLOOD PRESSURE MANAGEMENT
  3. SYNTHROID [Concomitant]

REACTIONS (1)
  - ALOPECIA [None]
